FAERS Safety Report 17099853 (Version 3)
Quarter: 2020Q1

REPORT INFORMATION
  Report Type: Report from Study
  Country: GR (occurrence: GR)
  Receive Date: 20191202
  Receipt Date: 20200306
  Transmission Date: 20200409
  Serious: Yes (Hospitalization, Other)
  Sender: FDA-Public Use
  Company Number: GR-AEGERION PHARMACEUTICAL, INC-AEGR004585

PATIENT
  Age: 47 Year
  Sex: Female

DRUGS (17)
  1. LOJUXTA AMRYT [Suspect]
     Active Substance: LOMITAPIDE MESYLATE
     Dosage: 10 MG, EVERY NIGHT
     Route: 048
     Dates: start: 20200107, end: 202001
  2. LOJUXTA AMRYT [Suspect]
     Active Substance: LOMITAPIDE MESYLATE
     Dosage: 5 MG, EVERY NIGHT
     Route: 048
     Dates: start: 201903, end: 201904
  3. LOJUXTA AMRYT [Suspect]
     Active Substance: LOMITAPIDE MESYLATE
     Dosage: 10 MG, EVERY NIGHT
     Route: 048
     Dates: start: 20200130, end: 20200219
  4. LOJUXTA AMRYT [Suspect]
     Active Substance: LOMITAPIDE MESYLATE
     Dosage: 10 MG, EVERY NIGHT
     Route: 048
     Dates: start: 201904, end: 20190523
  5. LOJUXTA AMRYT [Suspect]
     Active Substance: LOMITAPIDE MESYLATE
     Dosage: 10 MG, EVERY NIGHT
     Route: 048
     Dates: start: 20190812, end: 20191129
  6. LOPRESOR                           /00376902/ [Concomitant]
     Active Substance: METOPROLOL TARTRATE
     Dosage: 25 MG, BID, MORNING-NIGHT
  7. VITAMIN E                          /00110501/ [Concomitant]
     Active Substance: TOCOPHEROL
     Indication: SUPPLEMENTATION THERAPY
     Dosage: UNK
  8. SALOSPIR [Concomitant]
     Active Substance: ASPIRIN
     Dosage: 2 TABS, BID, MORNING-NIGHT
  9. LOPRESOR                           /00376902/ [Concomitant]
     Active Substance: METOPROLOL TARTRATE
     Indication: HYPERCHOLESTEROLAEMIA
     Dosage: 25 MG, QD
  10. OMEGA 3                            /01333901/ [Concomitant]
     Active Substance: FISH OIL\TOCOPHEROL
     Indication: SUPPLEMENTATION THERAPY
     Dosage: UNK
  11. PANTIUM                            /01116001/ [Concomitant]
     Indication: GASTROINTESTINAL DISORDER PROPHYLAXIS
     Dosage: 1 TAB, QD, EVERY NIGHT
  12. LOJUXTA AMRYT [Suspect]
     Active Substance: LOMITAPIDE MESYLATE
     Indication: TYPE IIA HYPERLIPIDAEMIA
     Dosage: UNK
     Route: 048
     Dates: start: 2017
  13. EZETROL [Concomitant]
     Active Substance: EZETIMIBE
     Indication: HYPERCHOLESTEROLAEMIA
     Dosage: 1 TAB, QD, EVERY NIGHT
  14. SALOSPIR [Concomitant]
     Active Substance: ASPIRIN
     Indication: PRODUCT USED FOR UNKNOWN INDICATION
     Dosage: 100 MG, QD, EVERY MORNING
  15. ROSUVASTATIN. [Concomitant]
     Active Substance: ROSUVASTATIN
     Indication: PRODUCT USED FOR UNKNOWN INDICATION
     Dosage: 1 TAB, QD, EVERY NIGHT
  16. ANTIHISTAMINES [Concomitant]
     Active Substance: ANTIHISTAMINES NOS
     Indication: HYPERSENSITIVITY
  17. COLCHICINE. [Concomitant]
     Active Substance: COLCHICINE
     Indication: PERICARDITIS

REACTIONS (8)
  - Thyroid disorder [Unknown]
  - Uterine leiomyoma [Unknown]
  - Diet noncompliance [Unknown]
  - Haematocrit decreased [Unknown]
  - Asthenia [Unknown]
  - Product dose omission [Recovered/Resolved]
  - Menstrual disorder [Unknown]
  - Product dose omission [Unknown]

NARRATIVE: CASE EVENT DATE: 2019
